FAERS Safety Report 6558937-3 (Version None)
Quarter: 2010Q1

REPORT INFORMATION
  Report Type: 
  Country: None (occurrence: None)
  Receive Date: 20100129
  Receipt Date: 20100122
  Transmission Date: 20100710
  Serious: Yes (Hospitalization)
  Sender: FDA-Public Use
  Company Number: NL-ABBOTT-10P-114-0622916-00

PATIENT
  Sex: Male
  Weight: 78 kg

DRUGS (1)
  1. LUCRIN DEPOT 11.25 MG [Suspect]
     Indication: PROSTATE CANCER
     Route: 058
     Dates: start: 20060101

REACTIONS (3)
  - ATRIAL FIBRILLATION [None]
  - DECREASED APPETITE [None]
  - MALAISE [None]
